FAERS Safety Report 12202643 (Version 2)
Quarter: 2021Q2

REPORT INFORMATION
  Report Type: Report from Study
  Country: US (occurrence: US)
  Receive Date: 20160323
  Receipt Date: 20210617
  Transmission Date: 20210716
  Serious: No
  Sender: FDA-Public Use
  Company Number: US-AMGEN-USASL2016033892

PATIENT
  Age: 10 Year
  Sex: Male
  Weight: 54.42 kg

DRUGS (2)
  1. ENBREL [Suspect]
     Active Substance: ETANERCEPT
     Indication: JUVENILE IDIOPATHIC ARTHRITIS
     Dosage: UNK
     Route: 065
  2. ENBREL [Suspect]
     Active Substance: ETANERCEPT
     Dosage: 50 MILLIGRAM, QWK
     Route: 065

REACTIONS (3)
  - Injection site pain [Unknown]
  - Injection site haemorrhage [Unknown]
  - Off label use [Unknown]

NARRATIVE: CASE EVENT DATE: 2021
